FAERS Safety Report 9210292 (Version 3)
Quarter: 2013Q3

REPORT INFORMATION
  Report Type: Report from Study
  Country: US (occurrence: US)
  Receive Date: 20130404
  Receipt Date: 20130823
  Transmission Date: 20140515
  Serious: Yes (Hospitalization, Other)
  Sender: FDA-Public Use
  Company Number: US-ROCHE-1209648

PATIENT
  Age: 73 Year
  Sex: Male

DRUGS (8)
  1. RITUXIMAB [Suspect]
     Indication: RHEUMATOID ARTHRITIS
     Route: 042
     Dates: start: 20130215, end: 20130215
  2. RITUXIMAB [Suspect]
     Route: 042
     Dates: start: 20121201
  3. RITUXIMAB [Suspect]
     Route: 042
     Dates: start: 20121216
  4. DOXYCYCLINE [Suspect]
     Indication: INFECTION
     Route: 048
     Dates: start: 20130331
  5. PREDNISONE [Concomitant]
     Indication: RHEUMATOID ARTHRITIS
     Route: 048
  6. CLONIDINE [Concomitant]
     Indication: HYPERTENSION
     Route: 048
  7. EDARBYCLOR [Concomitant]
     Indication: HYPERTENSION
     Route: 048
  8. VIMOVO [Concomitant]
     Indication: ARTHRALGIA
     Route: 048

REACTIONS (3)
  - Skin disorder [Recovered/Resolved]
  - Herpes zoster [Recovered/Resolved]
  - Furuncle [Not Recovered/Not Resolved]
